FAERS Safety Report 19484282 (Version 1)
Quarter: 2021Q3

REPORT INFORMATION
  Report Type: Spontaneous
  Country: US (occurrence: US)
  Receive Date: 20210702
  Receipt Date: 20210702
  Transmission Date: 20211014
  Serious: Yes (Hospitalization)
  Sender: FDA-Public Use
  Company Number: US-STRIDES ARCOLAB LIMITED-2021SP006036

PATIENT
  Age: 65 Year
  Sex: Female

DRUGS (16)
  1. PHENYLEPHRINE [Concomitant]
     Active Substance: PHENYLEPHRINE HYDROCHLORIDE
     Indication: HYPOTENSION
     Dosage: UNK
     Route: 065
  2. MAGNESIUM [Concomitant]
     Active Substance: MAGNESIUM
     Indication: ELECTROCARDIOGRAM QRS COMPLEX PROLONGED
  3. SODIUM BICARBONATE. [Concomitant]
     Active Substance: SODIUM BICARBONATE
     Indication: HYPOTENSION
     Dosage: 250 MILLIEQUIVALENT
     Route: 065
  4. NORTRIPTYLINE [Concomitant]
     Active Substance: NORTRIPTYLINE
     Indication: PRODUCT USED FOR UNKNOWN INDICATION
     Dosage: UNK
     Route: 065
  5. MAGNESIUM [Concomitant]
     Active Substance: MAGNESIUM
     Indication: BRADYCARDIA
     Dosage: UNK
     Route: 065
  6. NOREPINEPHRINE. [Concomitant]
     Active Substance: NOREPINEPHRINE
     Indication: HYPOTENSION
     Dosage: UNK
     Route: 065
  7. SODIUM BICARBONATE. [Concomitant]
     Active Substance: SODIUM BICARBONATE
     Indication: ELECTROCARDIOGRAM QRS COMPLEX PROLONGED
     Dosage: UNK
     Route: 065
  8. EPINEPHRINE. [Concomitant]
     Active Substance: EPINEPHRINE
     Indication: HYPOTENSION
     Dosage: UNK
     Route: 065
  9. VASOPRESSIN. [Concomitant]
     Active Substance: VASOPRESSIN
     Indication: HYPOTENSION
     Dosage: UNK
     Route: 065
  10. SODIUM BICARBONATE. [Concomitant]
     Active Substance: SODIUM BICARBONATE
     Indication: TACHYCARDIA
     Dosage: 70 MILLIEQUIVALENT
     Route: 065
  11. CALCIUM [Concomitant]
     Active Substance: CALCIUM
     Indication: BRADYCARDIA
     Dosage: UNK
     Route: 065
  12. CALCIUM [Concomitant]
     Active Substance: CALCIUM
     Indication: ELECTROCARDIOGRAM QRS COMPLEX PROLONGED
  13. LIDOCAINE. [Suspect]
     Active Substance: LIDOCAINE
     Indication: PULSELESS ELECTRICAL ACTIVITY
     Dosage: UNK
     Route: 065
  14. SOYA OIL [Suspect]
     Active Substance: SOYBEAN OIL
     Indication: PULSELESS ELECTRICAL ACTIVITY
     Dosage: UNK
     Route: 065
  15. METHYLENE BLUE. [Suspect]
     Active Substance: METHYLENE BLUE
     Indication: PULSELESS ELECTRICAL ACTIVITY
     Dosage: UNK
     Route: 065
  16. SODIUM BICARBONATE. [Concomitant]
     Active Substance: SODIUM BICARBONATE
     Indication: BRADYCARDIA
     Dosage: 450 MILLIEQUIVALENT TOTAL DOSE
     Route: 065

REACTIONS (1)
  - Drug ineffective for unapproved indication [Unknown]
